FAERS Safety Report 4728008-7 (Version None)
Quarter: 2005Q3

REPORT INFORMATION
  Report Type: 
  Country: None (occurrence: None)
  Receive Date: 20050725
  Receipt Date: 20050401
  Transmission Date: 20060218
  Serious: No
  Sender: FDA-Public Use
  Company Number: USA050494846

PATIENT
  Age: 8 Year
  Sex: Male

DRUGS (1)
  1. STRATTERA [Suspect]
     Dosage: 18 MG
     Dates: start: 20040101

REACTIONS (4)
  - FEELING HOT [None]
  - PALLOR [None]
  - PERIPHERAL COLDNESS [None]
  - PULSE PRESSURE DECREASED [None]
